FAERS Safety Report 4333779-8 (Version None)
Quarter: 2004Q2

REPORT INFORMATION
  Report Type: 
  Country: None (occurrence: None)
  Receive Date: 20040402
  Receipt Date: 20040326
  Transmission Date: 20050107
  Serious: Yes (Death, Hospitalization)
  Sender: FDA-Public Use
  Company Number: KII-1998-0000697

PATIENT
  Age: 51 Year
  Sex: Female

DRUGS (1)
  1. MS CONTIN [Suspect]
     Indication: PAIN
     Dosage: SEE IMAGE

REACTIONS (4)
  - ASPERGILLOSIS [None]
  - GASTROINTESTINAL CARCINOMA [None]
  - INTESTINAL OBSTRUCTION [None]
  - MYCOBACTERIUM CHELONEI INFECTION [None]
